FAERS Safety Report 5006985-7 (Version None)
Quarter: 2006Q2

REPORT INFORMATION
  Report Type: 
  Country: None (occurrence: None)
  Receive Date: 20060517
  Receipt Date: 20060507
  Transmission Date: 20061013
  Serious: Yes (Other)
  Sender: FDA-Public Use
  Company Number: 14013

PATIENT
  Age: 61 Year
  Sex: Female

DRUGS (4)
  1. CISPLATIN [Suspect]
     Indication: MALIGNANT MELANOMA STAGE IV
  2. DACARBAZINE [Suspect]
     Indication: MALIGNANT MELANOMA STAGE IV
  3. TAMOXIFEN CITRATE [Suspect]
     Indication: MALIGNANT MELANOMA STAGE IV
  4. NIMUSTINE HYDROCHLORIDE [Suspect]
     Indication: MALIGNANT MELANOMA STAGE IV

REACTIONS (1)
  - ACUTE MYOCARDIAL INFARCTION [None]
